FAERS Safety Report 16050930 (Version 1)
Quarter: 2019Q1

REPORT INFORMATION
  Report Type: Spontaneous
  Country: IT (occurrence: IT)
  Receive Date: 20190308
  Receipt Date: 20190308
  Transmission Date: 20190418
  Serious: Yes (Other)
  Sender: FDA-Public Use
  Company Number: IT-TEVA-2019-IT-1019953

PATIENT
  Age: 76 Year
  Sex: Female

DRUGS (1)
  1. IMATINIB MESILATE [Suspect]
     Active Substance: IMATINIB MESYLATE
     Indication: ACUTE MYELOID LEUKAEMIA
     Dosage: 100 MILLIGRAM DAILY;
     Route: 048

REACTIONS (5)
  - Swollen tongue [Unknown]
  - Swelling face [Unknown]
  - Erythema [Unknown]
  - Hypersensitivity [Unknown]
  - Gingival swelling [Unknown]

NARRATIVE: CASE EVENT DATE: 20190107
